FAERS Safety Report 10023585 (Version 1)
Quarter: 2014Q1

REPORT INFORMATION
  Report Type: Report from Study
  Country: CA (occurrence: CA)
  Receive Date: 20140320
  Receipt Date: 20140320
  Transmission Date: 20141002
  Serious: Yes (Other)
  Sender: FDA-Public Use
  Company Number: CA-JNJFOC-20140308279

PATIENT
  Sex: Female
  Weight: 81.4 kg

DRUGS (9)
  1. REMICADE [Suspect]
     Indication: CROHN^S DISEASE
     Route: 042
     Dates: start: 201005
  2. CALCIUM [Concomitant]
     Route: 065
  3. VITAMIN D [Concomitant]
     Route: 065
  4. MULTIVITAMINS [Concomitant]
     Route: 065
  5. IRON [Concomitant]
     Route: 065
  6. CRESTOR [Concomitant]
     Route: 065
  7. FLORINEF [Concomitant]
     Route: 065
  8. LASIX [Concomitant]
     Route: 065
  9. SOLUCORTEF [Concomitant]
     Indication: PREMEDICATION
     Route: 042

REACTIONS (2)
  - Benign lung neoplasm [Not Recovered/Not Resolved]
  - Cough [Not Recovered/Not Resolved]
